FAERS Safety Report 11401152 (Version 4)
Quarter: 2015Q3

REPORT INFORMATION
  Report Type: Spontaneous
  Country: US (occurrence: US)
  Receive Date: 20150820
  Receipt Date: 20150915
  Transmission Date: 20151125
  Serious: Yes (Other)
  Sender: FDA-Public Use
  Company Number: US-GLAXOSMITHKLINE INC.-US2015GSK119606

PATIENT
  Age: 78 Year
  Sex: Female

DRUGS (6)
  1. CARBIDOPA-LEVODOPA [Concomitant]
     Active Substance: CARBIDOPA\LEVODOPA
  2. MIRABEGRON [Concomitant]
     Active Substance: MIRABEGRON
  3. VICODIN [Suspect]
     Active Substance: ACETAMINOPHEN\HYDROCODONE BITARTRATE
     Indication: PRODUCT USED FOR UNKNOWN INDICATION
     Dosage: UNK, U
     Route: 065
  4. LAMICTAL [Suspect]
     Active Substance: LAMOTRIGINE
     Indication: BIPOLAR DISORDER
     Dosage: 100 MG, U
     Route: 065
  5. LAMOTRIGINE. [Concomitant]
     Active Substance: LAMOTRIGINE
  6. PAROXETINE HYDROCHLORIDE. [Concomitant]
     Active Substance: PAROXETINE HYDROCHLORIDE

REACTIONS (17)
  - Thyroid disorder [Not Recovered/Not Resolved]
  - Back pain [Unknown]
  - Ill-defined disorder [Not Recovered/Not Resolved]
  - Pain [Unknown]
  - Apparent death [Unknown]
  - Walking aid user [Not Recovered/Not Resolved]
  - Surgery [Unknown]
  - Emotional distress [Not Recovered/Not Resolved]
  - Neurostimulator implantation [Not Recovered/Not Resolved]
  - Abasia [Not Recovered/Not Resolved]
  - Neuropathy peripheral [Unknown]
  - Parkinson^s disease [Not Recovered/Not Resolved]
  - Bladder operation [Unknown]
  - Medical diet [Not Recovered/Not Resolved]
  - Gastric disorder [Unknown]
  - Gastric operation [Unknown]
  - Malaise [Not Recovered/Not Resolved]

NARRATIVE: CASE EVENT DATE: 20141118
